FAERS Safety Report 10645478 (Version 1)
Quarter: 2014Q4

REPORT INFORMATION
  Report Type: Other
  Country: DE (occurrence: DE)
  Receive Date: 20141211
  Receipt Date: 20141211
  Transmission Date: 20150529
  Serious: Yes (Other)
  Sender: FDA-Public Use
  Company Number: DE-GLENMARK GENERICS INC.-2014GMK012432

PATIENT
  Age: 1 Day
  Sex: Male
  Weight: 2.36 kg

DRUGS (2)
  1. TOPIRAMAT [Suspect]
     Active Substance: TOPIRAMATE
     Indication: EPILEPSY
     Dosage: 100 MG, BID
     Route: 064
     Dates: start: 20130317, end: 20131229
  2. TEGRETAL [Suspect]
     Active Substance: CARBAMAZEPINE
     Indication: EPILEPSY
     Dosage: 1000 MG, OD, (400 MG IN MORNING AND 600 MG IN EVENING)
     Route: 064
     Dates: start: 20130417, end: 20131229

REACTIONS (10)
  - Hypertonia neonatal [Recovered/Resolved]
  - Apnoea neonatal [Recovered/Resolved]
  - Congenital choroid plexus cyst [Unknown]
  - Feeding disorder neonatal [Recovered/Resolved]
  - Temperature regulation disorder [Recovered/Resolved]
  - Neonatal cholestasis [Recovered/Resolved]
  - Petechiae [Recovered/Resolved]
  - Atrial septal defect [Unknown]
  - Agitation neonatal [Recovered/Resolved]
  - Respiratory disorder neonatal [Recovered/Resolved]

NARRATIVE: CASE EVENT DATE: 20131229
